FAERS Safety Report 10947235 (Version 2)
Quarter: 2015Q2

REPORT INFORMATION
  Report Type: Spontaneous
  Country: US (occurrence: US)
  Receive Date: 20150321
  Receipt Date: 20150525
  Transmission Date: 20150821
  Serious: No
  Sender: FDA-Public Use
  Company Number: US-JNJFOC-20131018559

PATIENT

DRUGS (2)
  1. USTEKINUMAB [Suspect]
     Active Substance: USTEKINUMAB
     Indication: PSORIASIS
     Dosage: WEEK 0, 4 AND THEN EVERY 12 WEEKS, ON MONOTHERAPY
     Route: 058
  2. METHOTREXATE [Suspect]
     Active Substance: METHOTREXATE
     Indication: PSORIASIS
     Dosage: INITIAL DOSE RANGED FROM 7.5 MG TO 15 MG EVERY WEEK
     Route: 065

REACTIONS (1)
  - Therapeutic response decreased [Unknown]
